FAERS Safety Report 12832852 (Version 5)
Quarter: 2016Q4

REPORT INFORMATION
  Report Type: Spontaneous
  Country: US (occurrence: US)
  Receive Date: 20161010
  Receipt Date: 20161220
  Transmission Date: 20170207
  Serious: Yes (Hospitalization, Other)
  Sender: FDA-Public Use
  Company Number: US-TAKEDA-2016MPI008579

PATIENT
  Age: 59 Year
  Sex: Female
  Weight: 52.15 kg

DRUGS (22)
  1. VITAMIN D                          /00107901/ [Concomitant]
     Active Substance: ERGOCALCIFEROL
     Dosage: UNK
     Route: 048
  2. MULTIVITAMIN                       /07504101/ [Concomitant]
     Active Substance: VITAMINS
     Dosage: UNK
     Route: 065
  3. ACYCLOVIR                          /00587301/ [Concomitant]
     Active Substance: ACYCLOVIR
     Dosage: UNK
     Route: 065
     Dates: start: 201510
  4. ZOLOFT [Concomitant]
     Active Substance: SERTRALINE HYDROCHLORIDE
     Dosage: UNK
  5. ASPIRIN                            /00002701/ [Concomitant]
     Active Substance: ASPIRIN
     Dosage: 81 MG, UNK
     Route: 048
     Dates: start: 201608
  6. FOLIC ACID. [Concomitant]
     Active Substance: FOLIC ACID
     Dosage: 1 MG, UNK
     Route: 048
  7. DILTIAZEM. [Concomitant]
     Active Substance: DILTIAZEM
     Dosage: 30 MG, UNK
     Route: 048
  8. LEVOTHYROXIN [Concomitant]
     Active Substance: LEVOTHYROXINE
     Dosage: 150 MG, UNK
     Route: 048
  9. CALCIUM +D3 [Concomitant]
     Active Substance: CALCIUM\CHOLECALCIFEROL
     Dosage: UNK
  10. NINLARO [Suspect]
     Active Substance: IXAZOMIB
     Indication: PLASMA CELL MYELOMA
     Dosage: 4 MG, 1/WEEK
     Route: 048
     Dates: start: 20160922
  11. DEXAMETHASONE. [Suspect]
     Active Substance: DEXAMETHASONE
     Indication: PRODUCT USED FOR UNKNOWN INDICATION
     Dosage: 20 MG, 1/WEEK
     Route: 065
  12. MAGNESIUM OXIDE. [Concomitant]
     Active Substance: MAGNESIUM OXIDE
     Dosage: UNK
     Route: 065
  13. SERTRALINE [Concomitant]
     Active Substance: SERTRALINE HYDROCHLORIDE
     Dosage: 100 MG, UNK
  14. DAPSONE. [Concomitant]
     Active Substance: DAPSONE
     Dosage: UNK
     Route: 065
     Dates: start: 201606
  15. ZOFRAN [Concomitant]
     Active Substance: ONDANSETRON HYDROCHLORIDE
     Dosage: 4 MG, UNK
  16. CLONAZEPAM. [Concomitant]
     Active Substance: CLONAZEPAM
     Dosage: 10 MG, UNK
     Route: 048
     Dates: start: 201608
  17. MODAFINIL. [Concomitant]
     Active Substance: MODAFINIL
     Dosage: 200 MG, UNK
  18. OXYCODONE [Concomitant]
     Active Substance: OXYCODONE
     Dosage: UNK
  19. BUPROPION. [Concomitant]
     Active Substance: BUPROPION
     Dosage: 150 MG, UNK
     Route: 048
  20. REVLIMID [Suspect]
     Active Substance: LENALIDOMIDE
     Indication: PRODUCT USED FOR UNKNOWN INDICATION
     Dosage: 15 MG, UNK
     Route: 065
  21. ATENOLOL. [Concomitant]
     Active Substance: ATENOLOL
     Dosage: 25 MG, UNK
     Route: 048
     Dates: start: 201608
  22. OXYBUTIN [Concomitant]
     Active Substance: OXYBUTYNIN
     Dosage: 5 MG, UNK

REACTIONS (10)
  - Mixed incontinence [Unknown]
  - Drug dose omission [Unknown]
  - Clostridium difficile infection [Unknown]
  - Vulval abscess [Unknown]
  - Diarrhoea [Unknown]
  - Dizziness [Unknown]
  - Vulval cellulitis [Unknown]
  - Extra dose administered [Unknown]
  - Staphylococcal bacteraemia [Unknown]
  - Mucosal inflammation [Unknown]

NARRATIVE: CASE EVENT DATE: 201609
